FAERS Safety Report 15944272 (Version 1)
Quarter: 2019Q1

REPORT INFORMATION
  Report Type: Spontaneous
  Country: US (occurrence: US)
  Receive Date: 20190211
  Receipt Date: 20190211
  Transmission Date: 20190417
  Serious: Yes (Other)
  Sender: FDA-Public Use
  Company Number: US-CIPLA LTD.-2019US00803

PATIENT

DRUGS (1)
  1. WARFARIN [Suspect]
     Active Substance: WARFARIN
     Indication: CEREBROVASCULAR ACCIDENT
     Dosage: 2 MILLIGRAM, QD, (1.5 MG ON TUESDAYS)
     Route: 048
     Dates: start: 1997

REACTIONS (1)
  - Thrombocytopenia [Not Recovered/Not Resolved]
